FAERS Safety Report 9645072 (Version 1)
Quarter: 2013Q4

REPORT INFORMATION
  Report Type: Report from Study
  Country: CA (occurrence: CA)
  Receive Date: 20131025
  Receipt Date: 20131025
  Transmission Date: 20140711
  Serious: Yes (Hospitalization)
  Sender: FDA-Public Use
  Company Number: CA-JNJFOC-20131011650

PATIENT
  Age: 26 Year
  Sex: Female
  Weight: 71.67 kg

DRUGS (1)
  1. REMICADE [Suspect]
     Indication: CROHN^S DISEASE
     Route: 042
     Dates: start: 20131005

REACTIONS (3)
  - Procedural pain [Unknown]
  - Muscle spasms [Unknown]
  - Weight decreased [Unknown]
